FAERS Safety Report 7744309-2 (Version None)
Quarter: 2011Q3

REPORT INFORMATION
  Report Type: 
  Country: None (occurrence: None)
  Receive Date: 20110912
  Receipt Date: 20110907
  Transmission Date: 20111222
  Serious: Yes (Other)
  Sender: FDA-Public Use
  Company Number: US-PURDUE-USA-2011-0073725

PATIENT
  Sex: Female

DRUGS (1)
  1. OXYCONTIN [Suspect]
     Indication: INTERVERTEBRAL DISC DEGENERATION
     Dosage: 80 MG, Q12H
     Route: 048

REACTIONS (5)
  - NEPHROLITHIASIS [None]
  - FEELING ABNORMAL [None]
  - TOOTH EXTRACTION [None]
  - TOOTH INFECTION [None]
  - INFECTION [None]
